FAERS Safety Report 13864034 (Version 2)
Quarter: 2017Q3

REPORT INFORMATION
  Report Type: Report from Study
  Country: US (occurrence: US)
  Receive Date: 20170814
  Receipt Date: 20170822
  Transmission Date: 20171127
  Serious: Yes (Death, Hospitalization, Other)
  Sender: FDA-Public Use
  Company Number: US-GILEAD-2017-0287421

PATIENT
  Age: 17 Year
  Sex: Male

DRUGS (3)
  1. AMBRISENTAN [Suspect]
     Active Substance: AMBRISENTAN
     Indication: PULMONARY HYPERTENSION
     Dosage: 10 MG, QD
     Route: 048
     Dates: start: 20150516, end: 20170715
  2. AMBRISENTAN [Suspect]
     Active Substance: AMBRISENTAN
     Indication: CONNECTIVE TISSUE DISORDER
  3. AMBRISENTAN [Suspect]
     Active Substance: AMBRISENTAN
     Indication: HEART DISEASE CONGENITAL

REACTIONS (11)
  - Cardiac output decreased [Unknown]
  - Metabolic acidosis [Unknown]
  - Procedural hypotension [Unknown]
  - Urine output decreased [Unknown]
  - Abdominal distension [Unknown]
  - Respiratory distress [Unknown]
  - Unevaluable event [Unknown]
  - Death [Fatal]
  - Enterobacter sepsis [Unknown]
  - Endotracheal intubation complication [Unknown]
  - Off label use [Recovered/Resolved]

NARRATIVE: CASE EVENT DATE: 20150516
